FAERS Safety Report 4570056-4 (Version None)
Quarter: 2005Q1

REPORT INFORMATION
  Report Type: 
  Country: None (occurrence: None)
  Receive Date: 20050131
  Receipt Date: 20050121
  Transmission Date: 20050727
  Serious: Yes (Hospitalization)
  Sender: FDA-Public Use
  Company Number: HQWYE433707JAN05

PATIENT
  Age: 46 Year
  Sex: Female
  Weight: 65 kg

DRUGS (4)
  1. MYLOTARG [Suspect]
     Indication: MYELOID LEUKAEMIA
     Dosage: 9 MG/M^2  1X PER 1 DAY, INTRAVENOUS
     Route: 042
     Dates: start: 20041215, end: 20041215
  2. MYLOTARG [Suspect]
     Indication: MYELOID LEUKAEMIA
     Dosage: 9 MG/M^2  1X PER 1 DAY, INTRAVENOUS
     Route: 042
     Dates: start: 20041231, end: 20041231
  3. HEPARIN [Suspect]
     Indication: INTRAVENOUS CATHETER MANAGEMENT
     Dosage: INTRAVENOUS
     Route: 042
  4. VANCOMYCIN [Concomitant]

REACTIONS (2)
  - PAIN IN EXTREMITY [None]
  - PALMAR-PLANTAR ERYTHRODYSAESTHESIA SYNDROME [None]
